FAERS Safety Report 8407886-4 (Version None)
Quarter: 2012Q2

REPORT INFORMATION
  Report Type: 
  Country: None (occurrence: None)
  Receive Date: 20120604
  Receipt Date: 20120525
  Transmission Date: 20120825
  Serious: Yes (Death, Hospitalization)
  Sender: FDA-Public Use
  Company Number: US-BAYER-2012-053518

PATIENT
  Age: 63 Year
  Sex: Female

DRUGS (2)
  1. UNSPECIFIED BLOOD PRESSURE MEDICINE [Suspect]
     Indication: BLOOD PRESSURE ABNORMAL
  2. AVELOX [Suspect]
     Dosage: UNK
     Dates: end: 20120514

REACTIONS (3)
  - CEREBROVASCULAR ACCIDENT [None]
  - ANAPHYLACTIC SHOCK [None]
  - ERYTHEMA [None]
